FAERS Safety Report 18030325 (Version 1)
Quarter: 2020Q3

REPORT INFORMATION
  Report Type: Spontaneous
  Country: US (occurrence: US)
  Receive Date: 20200715
  Receipt Date: 20200715
  Transmission Date: 20201103
  Serious: Yes (Other)
  Sender: FDA-Public Use
  Company Number: None

PATIENT
  Age: 65 Year
  Sex: Male
  Weight: 85.05 kg

DRUGS (2)
  1. ALLEGRA TABLETS [Concomitant]
  2. LUMIFY [Suspect]
     Active Substance: BRIMONIDINE TARTRATE
     Indication: OCULAR HYPERAEMIA
     Dates: start: 20200712, end: 20200715

REACTIONS (6)
  - Eye pain [None]
  - Eyelid thickening [None]
  - Eye swelling [None]
  - Ocular hyperaemia [None]
  - Eye pruritus [None]
  - Eye discharge [None]

NARRATIVE: CASE EVENT DATE: 20200714
